FAERS Safety Report 4383805-5 (Version None)
Quarter: 2004Q2

REPORT INFORMATION
  Report Type: 
  Country: None (occurrence: None)
  Receive Date: 20040608
  Receipt Date: 20031022
  Transmission Date: 20050107
  Serious: Yes (Hospitalization, Other)
  Sender: FDA-Public Use
  Company Number: 200313883BCC

PATIENT
  Age: 77 Year
  Sex: Female
  Weight: 45.3597 kg

DRUGS (5)
  1. ALEVE [Suspect]
     Indication: PAIN IN EXTREMITY
     Dosage: 440 MG, QD, ORAL
     Route: 048
     Dates: start: 20030615, end: 20031001
  2. ACTONEL [Concomitant]
  3. MICARDIS [Concomitant]
  4. SOLARAY [Concomitant]
  5. MULTI-VITAMINS [Concomitant]

REACTIONS (2)
  - ASTHENIA [None]
  - GASTROINTESTINAL ULCER HAEMORRHAGE [None]
